FAERS Safety Report 12180861 (Version 2)
Quarter: 2016Q1

REPORT INFORMATION
  Report Type: Spontaneous
  Country: US (occurrence: US)
  Receive Date: 20160315
  Receipt Date: 20160317
  Transmission Date: 20160526
  Serious: No
  Sender: FDA-Public Use
  Company Number: US-BAYER-2016-050833

PATIENT
  Age: 39 Year
  Sex: Male
  Weight: 89.8 kg

DRUGS (1)
  1. CLARITIN-D 24 HOUR [Suspect]
     Active Substance: LORATADINE\PSEUDOEPHEDRINE SULFATE
     Indication: SEASONAL ALLERGY
     Dosage: 1 DF, PRN
     Route: 048
     Dates: end: 20150314

REACTIONS (2)
  - Expired product administered [None]
  - Somnolence [Recovered/Resolved]

NARRATIVE: CASE EVENT DATE: 20160314
